FAERS Safety Report 12598820 (Version 1)
Quarter: 2016Q3

REPORT INFORMATION
  Report Type: Spontaneous
  Country: US (occurrence: None)
  Receive Date: 20160726
  Receipt Date: 20160726
  Transmission Date: 20161109
  Serious: Yes (Hospitalization)
  Sender: FDA-Public Use
  Company Number: None

PATIENT
  Age: 80 Year
  Sex: Male
  Weight: 82.9 kg

DRUGS (3)
  1. TAXOL [Suspect]
     Active Substance: PACLITAXEL
     Dates: end: 20160706
  2. CARBOPLATIN. [Suspect]
     Active Substance: CARBOPLATIN
     Dates: end: 20160706
  3. METFORMIN HYDROCHLORIDE. [Suspect]
     Active Substance: METFORMIN HYDROCHLORIDE
     Dates: end: 20160709

REACTIONS (7)
  - Dyspnoea [None]
  - Atrial fibrillation [None]
  - Cardio-respiratory arrest [None]
  - Productive cough [None]
  - Pulmonary mass [None]
  - Lung infiltration [None]
  - Infection [None]

NARRATIVE: CASE EVENT DATE: 20160714
